FAERS Safety Report 25425344 (Version 1)
Quarter: 2025Q2

REPORT INFORMATION
  Report Type: Spontaneous
  Country: NL (occurrence: NL)
  Receive Date: 20250611
  Receipt Date: 20250611
  Transmission Date: 20250716
  Serious: Yes (Hospitalization, Other)
  Sender: ELI LILLY AND COMPANY
  Company Number: NL-ELI_LILLY_AND_COMPANY-NL202506000613

PATIENT
  Age: 73 Year
  Sex: Male

DRUGS (1)
  1. RETEVMO [Suspect]
     Active Substance: SELPERCATINIB
     Indication: Thyroid cancer metastatic
     Dosage: 160 MG, BID
     Route: 065
     Dates: start: 20231024, end: 20240125

REACTIONS (5)
  - Cardiac failure [Unknown]
  - Diastolic dysfunction [Unknown]
  - Confusional state [Unknown]
  - Urinary tract infection [Unknown]
  - Pneumonia [Unknown]

NARRATIVE: CASE EVENT DATE: 20240124
